FAERS Safety Report 4848025-6 (Version None)
Quarter: 2005Q4

REPORT INFORMATION
  Report Type: 
  Country: None (occurrence: None)
  Receive Date: 20051207
  Receipt Date: 20051207
  Transmission Date: 20060501
  Serious: Yes (Other)
  Sender: FDA-Public Use
  Company Number: None

PATIENT
  Age: 89 Year
  Sex: Female

DRUGS (1)
  1. PROTOPIC [Suspect]
     Indication: DERMATITIS ATOPIC
     Dosage: APPLY TWICE A DAY AS NEEDED FOR RASHES BUT PATIENT ONLY APPLIED MED ONCE A DAY TO ATOPIC DERMATITIS
     Dates: start: 20051125, end: 20051126

REACTIONS (1)
  - HAIR COLOUR CHANGES [None]
